FAERS Safety Report 9752311 (Version 1)
Quarter: 2013Q4

REPORT INFORMATION
  Report Type: Spontaneous
  Country: US (occurrence: None)
  Receive Date: 20131211
  Receipt Date: 20131211
  Transmission Date: 20140711
  Serious: Yes (Other)
  Sender: FDA-Public Use
  Company Number: None

PATIENT
  Age: 69 Year
  Sex: Female
  Weight: 52.7 kg

DRUGS (8)
  1. ATELVIA 35MG WARNERCHILCOTT [Suspect]
     Indication: OSTEOPENIA
     Dosage: 35MG, ONCE WEEKLY
     Dates: start: 20130403, end: 20130131
  2. SERTRALINE 100MG [Concomitant]
  3. CLARITIN 10MG [Concomitant]
  4. ESTRACE VIGINAL CREAM [Concomitant]
  5. PROMETRIUM 200MG [Concomitant]
  6. KRILL OIL [Concomitant]
  7. VITAMIN D 1000IU [Concomitant]
  8. CALCIUM 500MG [Concomitant]

REACTIONS (4)
  - Bone pain [None]
  - Myalgia [None]
  - Groin pain [None]
  - Back pain [None]
